FAERS Safety Report 6640848-6 (Version None)
Quarter: 2010Q1

REPORT INFORMATION
  Report Type: 
  Country: None (occurrence: None)
  Receive Date: 20100318
  Receipt Date: 20100309
  Transmission Date: 20100710
  Serious: Yes (Other)
  Sender: FDA-Public Use
  Company Number: US-PFIZER INC-2010031052

PATIENT
  Sex: Female

DRUGS (7)
  1. XANAX [Suspect]
     Indication: INSOMNIA
     Dosage: 2 MG AT BEDTIME
     Dates: end: 20100204
  2. NEURONTIN [Suspect]
     Indication: NEUROPATHY PERIPHERAL
     Dosage: 2400 MG, UNK
     Dates: end: 20100204
  3. LUNESTA [Suspect]
     Indication: INSOMNIA
     Dosage: 3 MG AT BEDTIME
     Route: 048
     Dates: start: 20080101, end: 20100204
  4. LUNESTA [Suspect]
     Dosage: 3 MG AT BEDTIME
     Route: 048
     Dates: start: 20100211
  5. HYDROCODONE [Suspect]
     Indication: RHEUMATOID ARTHRITIS
     Dosage: 40 MG, UNK
     Dates: end: 20100204
  6. HYDROCODONE [Suspect]
     Indication: PAIN
  7. BACLOFEN [Suspect]
     Indication: MUSCLE SPASMS
     Dosage: UNK
     Dates: end: 20100204

REACTIONS (7)
  - ARTHRALGIA [None]
  - DIARRHOEA [None]
  - HYPERHIDROSIS [None]
  - INSOMNIA [None]
  - PARAESTHESIA [None]
  - WEIGHT DECREASED [None]
  - WITHDRAWAL SYNDROME [None]
